FAERS Safety Report 16841677 (Version 1)
Quarter: 2019Q3

REPORT INFORMATION
  Report Type: Spontaneous
  Country: US (occurrence: US)
  Receive Date: 20190923
  Receipt Date: 20190923
  Transmission Date: 20191005
  Serious: Yes (Hospitalization)
  Sender: FDA-Public Use
  Company Number: US-PFIZER INC-2019405489

PATIENT

DRUGS (1)
  1. ADVIL [Suspect]
     Active Substance: IBUPROFEN
     Indication: SLEEP DISORDER
     Dosage: UNK, 2X/DAY (3 IN MORNING 4 IN NIGHT)

REACTIONS (7)
  - Sciatica [Unknown]
  - Pain [Not Recovered/Not Resolved]
  - Gait disturbance [Unknown]
  - Overdose [Unknown]
  - Arthralgia [Unknown]
  - Drug ineffective [Unknown]
  - Intentional product misuse [Unknown]
